FAERS Safety Report 20077065 (Version 1)
Quarter: 2021Q4

REPORT INFORMATION
  Report Type: Spontaneous
  Country: US (occurrence: US)
  Receive Date: 20211116
  Receipt Date: 20211116
  Transmission Date: 20220303
  Serious: Yes (Hospitalization, Other)
  Sender: FDA-Public Use
  Company Number: US-LUNDBECK-DKLU3040841

PATIENT
  Age: 5 Year
  Sex: Male

DRUGS (3)
  1. SABRIL [Suspect]
     Active Substance: VIGABATRIN
     Indication: Infantile spasms
     Route: 048
     Dates: start: 20170329
  2. SABRIL [Suspect]
     Active Substance: VIGABATRIN
     Indication: Partial seizures
     Route: 048
     Dates: start: 2017
  3. SABRIL [Suspect]
     Active Substance: VIGABATRIN
     Indication: Simple partial seizures
     Route: 048
     Dates: start: 2017

REACTIONS (2)
  - Seizure [Unknown]
  - Influenza like illness [Unknown]
